FAERS Safety Report 11365835 (Version 4)
Quarter: 2019Q1

REPORT INFORMATION
  Report Type: Spontaneous
  Country: US (occurrence: US)
  Receive Date: 20150811
  Receipt Date: 20190320
  Transmission Date: 20190417
  Serious: Yes (Other)
  Sender: FDA-Public Use
  Company Number: US-DSJP-DSU-2015-124863

PATIENT
  Age: 67 Year
  Sex: Female
  Weight: 58.95 kg

DRUGS (4)
  1. BENICAR [Suspect]
     Active Substance: OLMESARTAN MEDOXOMIL
     Indication: HYPERTENSION
     Dosage: 25 MG, QD
     Route: 048
     Dates: start: 20060518, end: 20150209
  2. BENICAR HCT [Suspect]
     Active Substance: HYDROCHLOROTHIAZIDE\OLMESARTAN MEDOXOMIL
     Indication: HYPERTENSION
     Dosage: 40-25 MG, UNK
     Route: 048
     Dates: start: 20060425, end: 20071228
  3. BENICAR HCT [Suspect]
     Active Substance: HYDROCHLOROTHIAZIDE\OLMESARTAN MEDOXOMIL
     Dosage: 20-12.5 MG, QD
     Route: 048
     Dates: start: 20060518, end: 20150209
  4. TYLENOL [Concomitant]
     Active Substance: ACETAMINOPHEN
     Indication: PRODUCT USED FOR UNKNOWN INDICATION
     Dosage: UNK

REACTIONS (7)
  - Upper gastrointestinal haemorrhage [Unknown]
  - Sprue-like enteropathy [Recovering/Resolving]
  - Gastric ulcer [Recovered/Resolved]
  - Acute kidney injury [Unknown]
  - Polyp [Recovered/Resolved]
  - Chronic kidney disease [Unknown]
  - Colitis ulcerative [Unknown]

NARRATIVE: CASE EVENT DATE: 2006
